FAERS Safety Report 4607075-5 (Version None)
Quarter: 2005Q1

REPORT INFORMATION
  Report Type: 
  Country: None (occurrence: None)
  Receive Date: 20050314
  Receipt Date: 20050302
  Transmission Date: 20050727
  Serious: Yes (Life-Threatening, Hospitalization)
  Sender: FDA-Public Use
  Company Number: US-BRISTOL-MYERS SQUIBB COMPANY-12883096

PATIENT
  Age: 44 Year
  Sex: Male

DRUGS (4)
  1. ABILIFY [Suspect]
     Route: 048
     Dates: start: 20050212
  2. ATIVAN [Concomitant]
  3. AMBIEN [Concomitant]
  4. NORVASC [Concomitant]

REACTIONS (3)
  - COMA [None]
  - PYREXIA [None]
  - WHITE BLOOD CELL COUNT INCREASED [None]
